FAERS Safety Report 17449105 (Version 2)
Quarter: 2020Q1

REPORT INFORMATION
  Report Type: Spontaneous
  Country: US (occurrence: US)
  Receive Date: 20200224
  Receipt Date: 20200306
  Transmission Date: 20200409
  Serious: Yes (Hospitalization, Other)
  Sender: FDA-Public Use
  Company Number: US-BRISTOL-MYERS SQUIBB COMPANY-BMS-2020-013620

PATIENT
  Sex: Male

DRUGS (2)
  1. COUMADIN [Suspect]
     Active Substance: WARFARIN SODIUM
     Indication: CEREBROVASCULAR ACCIDENT
     Dosage: 6 AND 7.5 MG
     Route: 065
  2. WARFARIN [Suspect]
     Active Substance: WARFARIN
     Indication: CEREBROVASCULAR ACCIDENT
     Dosage: 5 MILLIGRAM
     Route: 065

REACTIONS (6)
  - Pneumonia [Unknown]
  - Paralysis [Recovering/Resolving]
  - Tumour haemorrhage [Unknown]
  - Influenza [Unknown]
  - Dementia [Unknown]
  - Cerebrovascular accident [Unknown]
